FAERS Safety Report 24339406 (Version 1)
Quarter: 2024Q3

REPORT INFORMATION
  Report Type: Spontaneous
  Country: ES (occurrence: ES)
  Receive Date: 20240919
  Receipt Date: 20240919
  Transmission Date: 20241016
  Serious: Yes (Other)
  Sender: BAYER
  Company Number: None

PATIENT
  Age: 67 Year
  Sex: Male
  Weight: 87 kg

DRUGS (1)
  1. NAPROXEN SODIUM [Suspect]
     Active Substance: NAPROXEN\NAPROXEN SODIUM
     Indication: Plantar fasciitis
     Route: 048
     Dates: start: 20240827

REACTIONS (2)
  - Behcet^s syndrome [Recovering/Resolving]
  - Condition aggravated [Recovering/Resolving]

NARRATIVE: CASE EVENT DATE: 20240828
